FAERS Safety Report 6175343-4 (Version None)
Quarter: 2009Q2

REPORT INFORMATION
  Report Type: 
  Country: None (occurrence: None)
  Receive Date: 20090429
  Receipt Date: 20090417
  Transmission Date: 20091009
  Serious: Yes (Other)
  Sender: FDA-Public Use
  Company Number: 09-000615

PATIENT
  Age: 34 Year
  Sex: Female
  Weight: 70.3 kg

DRUGS (2)
  1. FEMCON FE [Suspect]
     Indication: CONTRACEPTION
     Dosage: 0.4MG/35 MCG, DAILY, ORAL
     Route: 048
     Dates: start: 20090306
  2. MULTIVITAMIN [Concomitant]

REACTIONS (2)
  - ARRHYTHMIA SUPRAVENTRICULAR [None]
  - PALPITATIONS [None]
